FAERS Safety Report 5622454-5 (Version None)
Quarter: 2008Q1

REPORT INFORMATION
  Report Type: 
  Country: None (occurrence: None)
  Receive Date: 20080114
  Receipt Date: 20070904
  Transmission Date: 20080703
  Serious: Yes (Other)
  Sender: FDA-Public Use
  Company Number: A03200705437

PATIENT
  Age: 79 Year
  Sex: Female

DRUGS (6)
  1. PLAVIX [Suspect]
     Dosage: 75 MG QD - ORAL
     Route: 048
     Dates: start: 20060401, end: 20070101
  2. LISINOPRIL AND HYDROCHLOROTHIAZIDE [Concomitant]
  3. RISEDRONATE SODIUM [Concomitant]
  4. FEXOFENADINE [Concomitant]
  5. LABETALOL HCL [Concomitant]
  6. SIMVASTATIN [Concomitant]

REACTIONS (1)
  - RETINAL HAEMORRHAGE [None]
